FAERS Safety Report 6102595-9 (Version None)
Quarter: 2009Q1

REPORT INFORMATION
  Report Type: 
  Country: None (occurrence: None)
  Receive Date: 20090304
  Receipt Date: 20080923
  Transmission Date: 20090719
  Serious: No
  Sender: FDA-Public Use
  Company Number: A0748717A

PATIENT
  Age: 63 Year
  Sex: Female

DRUGS (8)
  1. REQUIP [Suspect]
     Indication: RESTLESS LEGS SYNDROME
     Dosage: .25MG PER DAY
     Route: 048
     Dates: start: 20080917, end: 20080919
  2. CARBATROL [Concomitant]
  3. SYNTHROID [Concomitant]
  4. PREMPRO [Concomitant]
  5. NEURONTIN [Concomitant]
  6. TIMOLOL MALEATE [Concomitant]
  7. XALATAN [Concomitant]
  8. AVONEX [Concomitant]

REACTIONS (4)
  - EXPIRED DRUG ADMINISTERED [None]
  - FATIGUE [None]
  - HYPOAESTHESIA [None]
  - NAUSEA [None]
